FAERS Safety Report 7194126-X (Version None)
Quarter: 2010Q4

REPORT INFORMATION
  Report Type: 
  Country: None (occurrence: None)
  Receive Date: 20101223
  Receipt Date: 20101215
  Transmission Date: 20110411
  Serious: Yes (Hospitalization)
  Sender: FDA-Public Use
  Company Number: PHHY2010JP85219

PATIENT
  Age: 76 Year
  Sex: Male

DRUGS (1)
  1. CEFTRIAXONE SODIUM [Suspect]
     Indication: SEPSIS
     Dosage: 2 G, QD

REACTIONS (4)
  - CHOREOATHETOSIS [None]
  - DYSKINESIA [None]
  - FALL [None]
  - LOSS OF CONSCIOUSNESS [None]
